FAERS Safety Report 5317286-1 (Version None)
Quarter: 2007Q2

REPORT INFORMATION
  Report Type: 
  Country: None (occurrence: None)
  Receive Date: 20070504
  Receipt Date: 20070423
  Transmission Date: 20071010
  Serious: Yes (Hospitalization, Other)
  Sender: FDA-Public Use
  Company Number: FI-PFIZER INC-2007033348

PATIENT
  Sex: Female

DRUGS (11)
  1. LYRICA [Suspect]
     Indication: TEMPORAL LOBE EPILEPSY
     Route: 048
  2. DEPRAKINE [Concomitant]
     Route: 048
  3. LAMICTAL [Concomitant]
     Route: 048
  4. SIRDALUD [Concomitant]
     Route: 048
  5. ANALGESICS [Concomitant]
     Route: 048
  6. CELEBRA [Concomitant]
     Route: 048
  7. STESOLID [Concomitant]
  8. MAGNESIUM SULFATE [Concomitant]
  9. OMEGA 3 [Concomitant]
  10. VITAMIN B [Concomitant]
  11. IRON PREPARATIONS [Concomitant]

REACTIONS (8)
  - BACK PAIN [None]
  - CHOLELITHIASIS [None]
  - COMPLEX PARTIAL SEIZURES [None]
  - CONSTIPATION [None]
  - FAECALOMA [None]
  - HAEMATURIA [None]
  - OEDEMA PERIPHERAL [None]
  - WEIGHT INCREASED [None]
